FAERS Safety Report 6663290-0 (Version None)
Quarter: 2010Q2

REPORT INFORMATION
  Report Type: 
  Country: None (occurrence: None)
  Receive Date: 20100401
  Receipt Date: 20100329
  Transmission Date: 20101027
  Serious: Yes (Hospitalization)
  Sender: FDA-Public Use
  Company Number: US-TEVA-229164USA

PATIENT
  Sex: Male

DRUGS (3)
  1. BENZTROPINE MESYLATE [Suspect]
  2. RISPERIDONE [Concomitant]
  3. CITALOPRAM HYDROBROMIDE [Concomitant]

REACTIONS (1)
  - CATATONIA [None]
